FAERS Safety Report 10354124 (Version 5)
Quarter: 2015Q2

REPORT INFORMATION
  Report Type: Report from Study
  Country: CA (occurrence: CA)
  Receive Date: 20140731
  Receipt Date: 20150611
  Transmission Date: 20150821
  Serious: Yes (Other)
  Sender: FDA-Public Use
  Company Number: PHHY2013CA107266

PATIENT
  Sex: Male

DRUGS (9)
  1. VITAMIN C [Concomitant]
     Active Substance: ASCORBIC ACID
     Indication: PRODUCT USED FOR UNKNOWN INDICATION
     Route: 065
  2. TASIGNA [Suspect]
     Active Substance: NILOTINIB
     Dosage: 600 MG, QD
     Route: 048
  3. TASIGNA [Suspect]
     Active Substance: NILOTINIB
     Dosage: 150 MG, QD
     Route: 048
  4. TASIGNA [Suspect]
     Active Substance: NILOTINIB
     Dosage: 450 MG, QD(ALTERNATING DOSES OF 300MG QD AND 450MG QD)
     Route: 048
  5. TASIGNA [Suspect]
     Active Substance: NILOTINIB
     Indication: CHRONIC MYELOID LEUKAEMIA
     Dosage: 300 MG BID
     Route: 048
     Dates: start: 20130823
  6. TASIGNA [Suspect]
     Active Substance: NILOTINIB
     Dosage: 400 MG, QD
     Route: 048
  7. LORATADINE. [Concomitant]
     Active Substance: LORATADINE
     Indication: PRODUCT USED FOR UNKNOWN INDICATION
     Route: 065
  8. TASIGNA [Suspect]
     Active Substance: NILOTINIB
     Dosage: 450 MG (300 MG QAM, 150 MG QPM)
     Route: 048
     Dates: end: 20131127
  9. TASIGNA [Suspect]
     Active Substance: NILOTINIB
     Dosage: 150 MG, QD
     Route: 048
     Dates: start: 201405

REACTIONS (20)
  - Vomiting [Unknown]
  - White blood cell count decreased [Recovering/Resolving]
  - Nausea [Not Recovered/Not Resolved]
  - Skin exfoliation [Unknown]
  - Breath odour [Unknown]
  - Dry skin [Unknown]
  - Blood bilirubin increased [Not Recovered/Not Resolved]
  - Skin disorder [Unknown]
  - Erythema [Unknown]
  - Rash macular [Unknown]
  - Dyspepsia [Unknown]
  - Vessel perforation [Unknown]
  - Platelet count decreased [Recovering/Resolving]
  - Haemoglobin decreased [Recovering/Resolving]
  - Red blood cell count decreased [Recovering/Resolving]
  - Full blood count decreased [Unknown]
  - Weight increased [Unknown]
  - Blood pressure increased [Unknown]
  - Abdominal discomfort [Unknown]
  - Acne [Unknown]
